FAERS Safety Report 7531011-5 (Version None)
Quarter: 2011Q2

REPORT INFORMATION
  Report Type: 
  Country: None (occurrence: None)
  Receive Date: 20110608
  Receipt Date: 20090125
  Transmission Date: 20111010
  Serious: Yes (Other)
  Sender: FDA-Public Use
  Company Number: US-BAYER-200911522NA

PATIENT
  Age: 65 Year
  Sex: Female
  Weight: 74.83 kg

DRUGS (26)
  1. RYTHMOL [Concomitant]
     Dosage: THEN 2.5 MG MORNING, 425 MG IN EVENING
     Route: 048
     Dates: start: 19960101, end: 20070101
  2. CALCIUM CHLORIDE [Concomitant]
     Dosage: 15 MG
     Route: 042
     Dates: start: 20070201, end: 20070201
  3. AMIODARONE HCL [Concomitant]
     Dosage: 150 MG
     Route: 042
     Dates: start: 20070201, end: 20070201
  4. PLATELETS [Concomitant]
     Dosage: 6 PACKS
     Route: 042
     Dates: start: 20070201
  5. COUMADIN [Concomitant]
     Dosage: 5 MG DAILY X 6 DAYS, THEN 2.5 MG ON 7TH DAY.
     Route: 048
     Dates: start: 19960101, end: 20070101
  6. DIGOXIN [Concomitant]
     Dosage: 0.125 MG, QD
     Route: 048
     Dates: start: 19960101, end: 20070101
  7. SEREVENT [Concomitant]
     Dosage: 13 G, QD
     Route: 048
     Dates: start: 19960101, end: 20090101
  8. EPINEPHRINE [Concomitant]
     Dosage: 4 MG
     Route: 042
     Dates: start: 20070201, end: 20070201
  9. RED BLOOD CELLS [Concomitant]
     Dosage: 2 UNITS ONCE
     Route: 042
     Dates: start: 20070212
  10. TRASYLOL [Suspect]
     Indication: INTRA-AORTIC BALLOON PLACEMENT
  11. ANCEF [Concomitant]
     Dosage: 2 GRAM
     Route: 042
     Dates: start: 20070201, end: 20070201
  12. ZAROXOLYN [Concomitant]
     Dosage: 2 MG, QD
     Route: 048
     Dates: start: 19960901, end: 20070101
  13. CARDIZEM [Concomitant]
     Dosage: 2 MG
     Route: 042
     Dates: start: 20070201, end: 20070201
  14. TRASYLOL [Suspect]
     Indication: CORONARY ARTERY BYPASS
     Dosage: 200 ML/HR, THEN 50 CC/HOUR
     Route: 042
     Dates: start: 20070201, end: 20070201
  15. TRASYLOL [Suspect]
     Indication: TRICUSPID VALVE REPAIR
  16. ATENOLOL [Concomitant]
     Dosage: 25 MG, QD
     Route: 048
     Dates: start: 20030507
  17. INSULIN [Concomitant]
     Dosage: 12 UNITS
     Route: 042
     Dates: start: 20070201, end: 20070201
  18. RED BLOOD CELLS [Concomitant]
     Dosage: 3 U, ONCE
     Route: 042
     Dates: start: 20070201
  19. LASIX [Concomitant]
     Dosage: 20 MG, BID
     Route: 048
     Dates: start: 19960901, end: 20070101
  20. SINGULAIR [Concomitant]
     Dosage: 10 MG, QD
     Route: 048
     Dates: start: 19960101, end: 20090101
  21. HEPARIN [Concomitant]
     Dosage: 22,000 UNITS
     Route: 042
     Dates: start: 20070201, end: 20070201
  22. TRASYLOL [Suspect]
     Indication: MITRAL VALVE REPLACEMENT
  23. TRASYLOL [Suspect]
     Indication: COX-MAZE PROCEDURE
  24. ALDACTONE [Concomitant]
     Dosage: 25 MG, QD
     Route: 048
     Dates: start: 19960901, end: 20070101
  25. FENTANYL [Concomitant]
     Dosage: 125 MG
     Route: 042
     Dates: start: 20070201, end: 20070201
  26. PLASMA [Concomitant]
     Dosage: 4 U, ONCE
     Route: 042
     Dates: start: 20070207

REACTIONS (12)
  - MULTI-ORGAN FAILURE [None]
  - ANXIETY [None]
  - FEAR [None]
  - STRESS [None]
  - PAIN [None]
  - RENAL INJURY [None]
  - UNEVALUABLE EVENT [None]
  - EMOTIONAL DISTRESS [None]
  - RENAL FAILURE [None]
  - RENAL IMPAIRMENT [None]
  - ANHEDONIA [None]
  - INJURY [None]
